FAERS Safety Report 13755591 (Version 2)
Quarter: 2017Q3

REPORT INFORMATION
  Report Type: Spontaneous
  Country: GB (occurrence: GB)
  Receive Date: 20170714
  Receipt Date: 20170824
  Transmission Date: 20171127
  Serious: Yes (Other)
  Sender: FDA-Public Use
  Company Number: GB-CONCORDIA PHARMACEUTICALS INC.-E2B_00008236

PATIENT
  Age: 54 Year
  Sex: Male

DRUGS (7)
  1. ISONIAZID. [Concomitant]
     Active Substance: ISONIAZID
     Indication: TUBERCULOSIS
     Dates: start: 201203, end: 201310
  2. PREDNISOLONE. [Suspect]
     Active Substance: PREDNISOLONE
     Dates: end: 201305
  3. PREDNISOLONE. [Suspect]
     Active Substance: PREDNISOLONE
     Indication: HEPATIC ENZYME ABNORMAL
     Dates: start: 2012
  4. PREDNISOLONE. [Suspect]
     Active Substance: PREDNISOLONE
     Indication: ORGANISING PNEUMONIA
  5. ETHAMBUTOL [Concomitant]
     Active Substance: ETHAMBUTOL HYDROCHLORIDE
     Indication: TUBERCULOSIS
     Dates: start: 201203, end: 201310
  6. ITRACONAZOLE. [Concomitant]
     Active Substance: ITRACONAZOLE
     Dates: start: 201302, end: 201402
  7. MOXIFLOXACIN. [Concomitant]
     Active Substance: MOXIFLOXACIN
     Indication: TUBERCULOSIS
     Dates: start: 201203, end: 201310

REACTIONS (1)
  - Cryptococcosis [Unknown]
